FAERS Safety Report 7146160-3 (Version None)
Quarter: 2010Q4

REPORT INFORMATION
  Report Type: 
  Country: None (occurrence: None)
  Receive Date: 20101208
  Receipt Date: 20101207
  Transmission Date: 20110411
  Serious: Yes (Hospitalization)
  Sender: FDA-Public Use
  Company Number: GB-AMGEN-GBRCT2010004715

PATIENT

DRUGS (7)
  1. PANITUMUMAB [Suspect]
     Indication: OESOPHAGEAL CARCINOMA
     Dosage: UNK
     Dates: start: 20100825
  2. EPIRUBICIN [Suspect]
     Dosage: UNK
     Dates: start: 20100825
  3. OXALIPLATIN [Suspect]
  4. CAPECITABINE [Suspect]
     Dosage: UNK
     Dates: start: 20100825
  5. PARACETAMOL [Concomitant]
     Dosage: 1 G, PRN
     Dates: start: 20100101
  6. LOPERAMIDE [Concomitant]
     Dosage: UNK UNK, PRN
     Dates: start: 20100825
  7. METOCLOPRAMIDE [Concomitant]

REACTIONS (2)
  - DIARRHOEA [None]
  - NEUTROPENIA [None]
